FAERS Safety Report 5350868-X (Version None)
Quarter: 2007Q2

REPORT INFORMATION
  Report Type: 
  Country: None (occurrence: None)
  Receive Date: 20070608
  Receipt Date: 20070531
  Transmission Date: 20071010
  Serious: Yes (Other)
  Sender: FDA-Public Use
  Company Number: B0470423A

PATIENT
  Age: 63 Year
  Sex: Female

DRUGS (7)
  1. AVANDAMET [Suspect]
     Indication: DIABETES MELLITUS
     Route: 065
     Dates: start: 20061201, end: 20070410
  2. ROSUVASTATIN [Concomitant]
  3. CARTIA XT [Concomitant]
  4. DILTIAZEM CD [Concomitant]
     Indication: HYPERTENSION
  5. METOPROLOL SUCCINATE [Concomitant]
     Dosage: 50MG TWICE PER DAY
  6. RAMIPRIL [Concomitant]
     Dosage: 10MG PER DAY
  7. AZATHIOPRINE [Concomitant]
     Dosage: 100MG PER DAY

REACTIONS (5)
  - CARDIAC FAILURE [None]
  - CHEST DISCOMFORT [None]
  - DYSPNOEA [None]
  - DYSPNOEA EXERTIONAL [None]
  - ORTHOPNOEA [None]
